FAERS Safety Report 7210523-8 (Version None)
Quarter: 2011Q1

REPORT INFORMATION
  Report Type: 
  Country: None (occurrence: None)
  Receive Date: 20110105
  Receipt Date: 20110104
  Transmission Date: 20110831
  Serious: Yes (Hospitalization)
  Sender: FDA-Public Use
  Company Number: CO-ROCHE-748251

PATIENT
  Age: 52 Year
  Sex: Female

DRUGS (11)
  1. ACTEMRA [Suspect]
     Indication: RHEUMATOID ARTHRITIS
     Route: 042
     Dates: start: 20100701, end: 20101117
  2. CHLOROQUINE [Concomitant]
     Indication: RHEUMATOID ARTHRITIS
     Route: 048
  3. CALCITRIOL [Concomitant]
  4. LEFLUNOMIDE [Concomitant]
     Route: 048
  5. TRAMADOL [Concomitant]
     Dosage: DOSE REPORTED AS 100 MG/ML QD, FREQUENCY: PRN
     Route: 048
  6. ACETAMINOPHEN [Concomitant]
  7. LOVASTATIN [Concomitant]
     Indication: HYPERTENSION
     Dosage: DRUG REPORTED AS LOVASTATINE
     Route: 048
  8. CALCIUM CARBONATE/VITAMIN D NOS [Concomitant]
  9. VERAPAMIL [Concomitant]
     Indication: HYPERTENSION
     Route: 048
  10. PREDNISOLONE [Concomitant]
     Route: 048
  11. OMEPRAZOLE [Concomitant]
     Route: 048

REACTIONS (3)
  - HYPERTENSION [None]
  - ACUTE MYOCARDIAL INFARCTION [None]
  - HYPERSENSITIVITY [None]
